FAERS Safety Report 5475453-0 (Version None)
Quarter: 2007Q3

REPORT INFORMATION
  Report Type: 
  Country: None (occurrence: None)
  Receive Date: 20070919
  Receipt Date: 20070810
  Transmission Date: 20080115
  Serious: No
  Sender: FDA-Public Use
  Company Number: 2007RL000359

PATIENT
  Age: 49 Year
  Sex: Female
  Weight: 72.5755 kg

DRUGS (4)
  1. OMACOR [Suspect]
     Dosage: 4 GM; QAM; PO; 2 GM; BID; PO
     Route: 048
     Dates: start: 20070523, end: 20070601
  2. OMACOR [Suspect]
     Dosage: 4 GM; QAM; PO; 2 GM; BID; PO
     Route: 048
     Dates: start: 20070601
  3. MIRCETTE [Concomitant]
  4. VITAMIN CAP [Concomitant]

REACTIONS (2)
  - MOOD ALTERED [None]
  - THERAPEUTIC RESPONSE UNEXPECTED [None]
